FAERS Safety Report 8540742-X (Version None)
Quarter: 2012Q3

REPORT INFORMATION
  Report Type: 
  Country: None (occurrence: None)
  Receive Date: 20120726
  Receipt Date: 20120717
  Transmission Date: 20120928
  Serious: Yes (Other)
  Sender: FDA-Public Use
  Company Number: US-ASTRAZENECA-2012SE36615

PATIENT
  Age: 17 Year
  Sex: Female
  Weight: 42.6 kg

DRUGS (3)
  1. SEROQUEL XR [Suspect]
     Indication: BIPOLAR DISORDER
     Route: 048
     Dates: start: 20120601
  2. ALBUTEROL [Suspect]
     Route: 065
  3. VENTOLIN [Concomitant]
     Indication: ASTHMA
     Dosage: 2 PUFFS PRN
     Route: 048

REACTIONS (2)
  - OFF LABEL USE [None]
  - MUSCLE TWITCHING [None]
